FAERS Safety Report 8494865-4 (Version None)
Quarter: 2012Q3

REPORT INFORMATION
  Report Type: 
  Country: None (occurrence: None)
  Receive Date: 20120709
  Receipt Date: 20120628
  Transmission Date: 20120928
  Serious: Yes (Other)
  Sender: FDA-Public Use
  Company Number: US-NOVOPROD-350749

PATIENT
  Age: 14 Year
  Sex: Male
  Weight: 48.073 kg

DRUGS (3)
  1. TUMS                               /00193601/ [Concomitant]
     Indication: MINERAL SUPPLEMENTATION
     Dosage: UNKNOWN
     Route: 065
  2. NORDITROPIN FLEXPRO [Suspect]
     Indication: DWARFISM
     Dosage: 0.8 MG, QD
     Route: 058
     Dates: start: 20060701, end: 20120210
  3. MULTIVITAMIN                       /00097801/ [Concomitant]
     Indication: PRODUCT USED FOR UNKNOWN INDICATION
     Dosage: UNKNOWN
     Route: 065

REACTIONS (1)
  - FIBROUS DYSPLASIA OF BONE [None]
